FAERS Safety Report 5235567-7 (Version None)
Quarter: 2007Q1

REPORT INFORMATION
  Report Type: 
  Country: None (occurrence: None)
  Receive Date: 20070212
  Receipt Date: 20070131
  Transmission Date: 20070707
  Serious: Yes (Life-Threatening, Hospitalization)
  Sender: FDA-Public Use
  Company Number: FRWYE130312JAN07

PATIENT
  Sex: Female
  Weight: 70 kg

DRUGS (9)
  1. ENBREL [Suspect]
     Indication: ANKYLOSING SPONDYLITIS
     Route: 058
     Dates: start: 20031114, end: 20040108
  2. ENBREL [Suspect]
     Route: 058
     Dates: start: 20040115, end: 20050218
  3. REMICADE [Suspect]
     Indication: ANKYLOSING SPONDYLITIS
     Dosage: 5 TO 7 MG/KG PER CYCLE
     Route: 042
     Dates: start: 20011212, end: 20031014
  4. HUMIRA [Suspect]
     Indication: ANKYLOSING SPONDYLITIS
     Route: 058
     Dates: start: 20050315, end: 20051103
  5. HUMIRA [Suspect]
     Route: 058
     Dates: start: 20051104, end: 20060217
  6. HUMIRA [Suspect]
     Dosage: UNKNOWN
     Route: 058
     Dates: start: 20060601, end: 20061121
  7. UTROGESTAN [Concomitant]
     Indication: HORMONE REPLACEMENT THERAPY
     Dosage: UNKNOWN
     Dates: start: 20010401
  8. DURAGESIC-100 [Concomitant]
     Dosage: 25 UG/HR; FREQUENCY UNSPEC.
     Route: 062
     Dates: start: 19990101
  9. ESTREVA [Concomitant]
     Indication: HORMONE REPLACEMENT THERAPY
     Dosage: UNKNOWN
     Dates: start: 20010401

REACTIONS (12)
  - ABDOMINAL PAIN UPPER [None]
  - ALANINE AMINOTRANSFERASE INCREASED [None]
  - ASPARTATE AMINOTRANSFERASE INCREASED [None]
  - BILIARY DILATATION [None]
  - BLOOD ALKALINE PHOSPHATASE INCREASED [None]
  - CONDITION AGGRAVATED [None]
  - GAMMA-GLUTAMYLTRANSFERASE INCREASED [None]
  - LOBAR PNEUMONIA [None]
  - PANCREATIC CARCINOMA METASTATIC [None]
  - PHARYNGITIS [None]
  - PNEUMONIA [None]
  - SPLENIC VEIN THROMBOSIS [None]
